FAERS Safety Report 8616172-9 (Version None)
Quarter: 2012Q3

REPORT INFORMATION
  Report Type: 
  Country: None (occurrence: None)
  Receive Date: 20120823
  Receipt Date: 20120814
  Transmission Date: 20120928
  Serious: Yes (Other)
  Sender: FDA-Public Use
  Company Number: US-NOVOPROD-348613

PATIENT
  Age: 61 Year
  Sex: Male
  Weight: 98.413 kg

DRUGS (1)
  1. VICTOZA [Suspect]
     Indication: TYPE 2 DIABETES MELLITUS
     Dosage: 0.6 MG, UNK
     Route: 058
     Dates: start: 20120201, end: 20120330

REACTIONS (2)
  - HEADACHE [None]
  - THROAT CANCER [None]
